FAERS Safety Report 16480313 (Version 14)
Quarter: 2022Q1

REPORT INFORMATION
  Report Type: Spontaneous
  Country: US (occurrence: US)
  Receive Date: 20190626
  Receipt Date: 20220106
  Transmission Date: 20220423
  Serious: Yes (Other)
  Sender: FDA-Public Use
  Company Number: US-PFIZER INC-2018535891

PATIENT
  Age: 51 Year
  Sex: Male
  Weight: 91 kg

DRUGS (6)
  1. PRISTIQ EXTENDED-RELEASE [Suspect]
     Active Substance: DESVENLAFAXINE SUCCINATE
     Indication: Obsessive-compulsive disorder
     Dosage: 150 MG DAILY (2 TABLETS EVERY MORNING AND 1 TABLET EVERY EVENING)
     Route: 048
  2. PRISTIQ EXTENDED-RELEASE [Suspect]
     Active Substance: DESVENLAFAXINE SUCCINATE
     Indication: Depression
     Dosage: 50 MG, ONCE A DAY
     Route: 048
  3. PRISTIQ EXTENDED-RELEASE [Suspect]
     Active Substance: DESVENLAFAXINE SUCCINATE
     Dosage: 100 MG, ONCE DAILY
  4. PRISTIQ EXTENDED-RELEASE [Suspect]
     Active Substance: DESVENLAFAXINE SUCCINATE
     Dosage: 50 MG, FOUR TIMES A DAY
     Route: 048
  5. PRISTIQ EXTENDED-RELEASE [Suspect]
     Active Substance: DESVENLAFAXINE SUCCINATE
     Dosage: 200 MG, DAILY (50 MG TAKE 4 TABLETS DAILY)
     Route: 048
  6. PRISTIQ EXTENDED-RELEASE [Suspect]
     Active Substance: DESVENLAFAXINE SUCCINATE
     Dosage: 50 MG, 1 TABLET THREE TIMES A DAY
     Route: 048

REACTIONS (19)
  - Immunodeficiency [Unknown]
  - Haemorrhage [Unknown]
  - Drug ineffective [Unknown]
  - Dizziness [Unknown]
  - Blood cholesterol increased [Unknown]
  - Insomnia [Unknown]
  - Amnesia [Unknown]
  - Memory impairment [Unknown]
  - Tremor [Unknown]
  - Fear [Unknown]
  - Withdrawal syndrome [Unknown]
  - Fatigue [Unknown]
  - Pain [Unknown]
  - Sleep disorder [Unknown]
  - Loss of personal independence in daily activities [Unknown]
  - Dyslexia [Unknown]
  - Intentional product misuse [Unknown]
  - Off label use [Unknown]
  - Product dispensing error [Unknown]

NARRATIVE: CASE EVENT DATE: 20210914
